FAERS Safety Report 8726006 (Version 4)
Quarter: 2012Q4

REPORT INFORMATION
  Report Type: 
  Country: GB (occurrence: GB)
  Receive Date: 20120816
  Receipt Date: 20121023
  Transmission Date: 20130627
  Serious: Yes (Hospitalization)
  Sender: FDA-Public Use
  Company Number: GB-RANBAXY-2012R1-58901

PATIENT
  Age: 79 Year
  Sex: Female

DRUGS (1)
  1. GLIMEPIRIDE [Suspect]
     Indication: DIABETES MELLITUS
     Dosage: 1 mg, qd
     Route: 048
     Dates: start: 201112

REACTIONS (2)
  - Myalgia [Recovering/Resolving]
  - Pain in extremity [Recovering/Resolving]
